FAERS Safety Report 5677335-8 (Version None)
Quarter: 2008Q1

REPORT INFORMATION
  Report Type: 
  Country: None (occurrence: None)
  Receive Date: 20080320
  Receipt Date: 20080320
  Transmission Date: 20080703
  Serious: Yes (Hospitalization)
  Sender: FDA-Public Use
  Company Number: None

PATIENT
  Sex: Female
  Weight: 75 kg

DRUGS (1)
  1. DILANTIN [Suspect]
     Dates: start: 20080114, end: 20080116

REACTIONS (3)
  - ATAXIA [None]
  - CONVULSION [None]
  - NYSTAGMUS [None]
